FAERS Safety Report 17609108 (Version 1)
Quarter: 2020Q2

REPORT INFORMATION
  Report Type: Spontaneous
  Country: US (occurrence: US)
  Receive Date: 20200401
  Receipt Date: 20200401
  Transmission Date: 20200713
  Serious: No
  Sender: FDA-Public Use
  Company Number: US-GLAXOSMITHKLINE-US2020AMR050073

PATIENT

DRUGS (1)
  1. VALTREX [Suspect]
     Active Substance: VALACYCLOVIR HYDROCHLORIDE
     Indication: PRODUCT USED FOR UNKNOWN INDICATION
     Dosage: UNK
     Route: 065

REACTIONS (10)
  - Chemotherapy [Unknown]
  - Chest pain [Unknown]
  - Skin burning sensation [Unknown]
  - Malaise [Unknown]
  - Radiotherapy [Unknown]
  - Herpes simplex [Recovering/Resolving]
  - Chills [Unknown]
  - Stress [Unknown]
  - Nasopharyngitis [Unknown]
  - Ear discomfort [Unknown]

NARRATIVE: CASE EVENT DATE: 201809
